FAERS Safety Report 17600317 (Version 1)
Quarter: 2020Q1

REPORT INFORMATION
  Report Type: Spontaneous
  Country: US (occurrence: US)
  Receive Date: 20200330
  Receipt Date: 20200330
  Transmission Date: 20200409
  Serious: No
  Sender: FDA-Public Use
  Company Number: US-BAYER-2020-046461

PATIENT
  Age: 65 Year
  Sex: Female

DRUGS (2)
  1. CLARITIN [Suspect]
     Active Substance: LORATADINE
     Dosage: 2 DF, QD
     Route: 065
  2. CLARITIN [Suspect]
     Active Substance: LORATADINE
     Dosage: 3 DF, ONCE

REACTIONS (1)
  - Extra dose administered [Unknown]
